FAERS Safety Report 16017152 (Version 1)
Quarter: 2019Q1

REPORT INFORMATION
  Report Type: Spontaneous
  Country: US (occurrence: US)
  Receive Date: 20190228
  Receipt Date: 20190228
  Transmission Date: 20190418
  Serious: No
  Sender: FDA-Public Use
  Company Number: US-009507513-1902USA010868

PATIENT
  Sex: Female

DRUGS (1)
  1. NUVARING [Suspect]
     Active Substance: ETHINYL ESTRADIOL\ETONOGESTREL
     Dosage: VAGIANL RING 0.015/0.12, THREE WEEKS WITH RING FREE WEEK
     Route: 067

REACTIONS (2)
  - Device expulsion [Unknown]
  - Inappropriate schedule of product administration [Unknown]
